FAERS Safety Report 8302303-7 (Version None)
Quarter: 2012Q2

REPORT INFORMATION
  Report Type: 
  Country: None (occurrence: None)
  Receive Date: 20120418
  Receipt Date: 20120403
  Transmission Date: 20120825
  Serious: Yes (Other)
  Sender: FDA-Public Use
  Company Number: 2012-1072

PATIENT
  Age: 61 Year
  Sex: Female
  Weight: 58 kg

DRUGS (6)
  1. NUMBING CREAM NOS (ANAESTHETICS FOR TOPICAL USE) [Concomitant]
  2. CALCIUM CARBONATE [Concomitant]
  3. DYSPORT [Suspect]
     Indication: OFF LABEL USE
     Dosage: 12 UNITS (12 UNITS, SINGLE CYLE)
     Dates: start: 20120224, end: 20120224
  4. DYSPORT [Suspect]
     Indication: SKIN WRINKLING
     Dosage: 12 UNITS (12 UNITS, SINGLE CYLE)
     Dates: start: 20120224, end: 20120224
  5. WELLBUTRIN [Concomitant]
  6. AN UNSPECIFIED STATIN (HMG COA REDUCTASE INHIBITORS) [Concomitant]

REACTIONS (7)
  - ANXIETY [None]
  - PALPITATIONS [None]
  - SENSORY DISTURBANCE [None]
  - VIRAL INFECTION [None]
  - WRONG TECHNIQUE IN DRUG USAGE PROCESS [None]
  - MUSCULAR WEAKNESS [None]
  - HYPOTONIC URINARY BLADDER [None]
